FAERS Safety Report 7366132-3 (Version None)
Quarter: 2011Q1

REPORT INFORMATION
  Report Type: 
  Country: None (occurrence: None)
  Receive Date: 20110322
  Receipt Date: 20110308
  Transmission Date: 20110831
  Serious: Yes (Hospitalization)
  Sender: FDA-Public Use
  Company Number: US-JNJFOC-20090106829

PATIENT
  Sex: Male
  Weight: 37 kg

DRUGS (3)
  1. HUMIRA [Concomitant]
  2. REMICADE [Suspect]
     Indication: CROHN'S DISEASE
     Dosage: RECEIVED 19 INFUSIONS
     Route: 042
     Dates: start: 20041008, end: 20070501
  3. AZATHIOPRINE [Concomitant]

REACTIONS (2)
  - MALNUTRITION [None]
  - CROHN'S DISEASE [None]
